FAERS Safety Report 7577839-7 (Version None)
Quarter: 2011Q2

REPORT INFORMATION
  Report Type: 
  Country: None (occurrence: None)
  Receive Date: 20110628
  Receipt Date: 20110615
  Transmission Date: 20111010
  Serious: Yes (Other)
  Sender: FDA-Public Use
  Company Number: PHHY2011US53085

PATIENT
  Sex: Female

DRUGS (1)
  1. CLOZAPINE [Suspect]
     Dosage: 5 DF, BED TIME

REACTIONS (8)
  - FEELING ABNORMAL [None]
  - POLLAKIURIA [None]
  - FEELING JITTERY [None]
  - DEPRESSED MOOD [None]
  - MALAISE [None]
  - FATIGUE [None]
  - INSOMNIA [None]
  - TREMOR [None]
